FAERS Safety Report 5952636-4 (Version None)
Quarter: 2008Q4

REPORT INFORMATION
  Report Type: 
  Country: None (occurrence: None)
  Receive Date: 20081029
  Receipt Date: 20080714
  Transmission Date: 20090506
  Serious: Yes (Life-Threatening)
  Sender: FDA-Public Use
  Company Number: 174358USA

PATIENT
  Age: 36 Year
  Sex: Male

DRUGS (1)
  1. ZOLPIDEM TARTRATE [Suspect]
     Indication: INSOMNIA
     Dosage: (10 MG, AS REQUIRED), ORAL
     Route: 048
     Dates: start: 20070709, end: 20070723

REACTIONS (3)
  - AMNESIA [None]
  - HALLUCINATION, AUDITORY [None]
  - SOMNAMBULISM [None]
